FAERS Safety Report 7339649-5 (Version None)
Quarter: 2011Q1

REPORT INFORMATION
  Report Type: 
  Country: None (occurrence: None)
  Receive Date: 20110308
  Receipt Date: 20110302
  Transmission Date: 20110831
  Serious: Yes (Other)
  Sender: FDA-Public Use
  Company Number: US-B.I. PHARMACEUTICALS,INC./RIDGEFIELD-2011-BP-06008BP

PATIENT
  Sex: Male

DRUGS (7)
  1. DILTIAZEM [Concomitant]
     Route: 048
  2. DIOVAN [Concomitant]
     Route: 048
  3. WARFARIN [Suspect]
     Route: 048
  4. ANTIVIRAL MEDICATION [Concomitant]
  5. SINEMET [Concomitant]
     Route: 048
  6. FLOMAX [Suspect]
     Dosage: 0.4 MG
     Route: 048
  7. METOPROLOL [Concomitant]
     Route: 048

REACTIONS (5)
  - ATRIAL FIBRILLATION [None]
  - HEADACHE [None]
  - BLOOD CHOLESTEROL INCREASED [None]
  - CEREBROVASCULAR ACCIDENT [None]
  - HAEMORRHAGE INTRACRANIAL [None]
